FAERS Safety Report 6862525-9 (Version None)
Quarter: 2010Q3

REPORT INFORMATION
  Report Type: 
  Country: None (occurrence: None)
  Receive Date: 20100721
  Receipt Date: 20100609
  Transmission Date: 20110219
  Serious: Yes (Other)
  Sender: FDA-Public Use
  Company Number: US-BAXTER-2010BH003437

PATIENT
  Age: 43 Year
  Sex: Female
  Weight: 62 kg

DRUGS (20)
  1. HEPARIN SODIUM [Suspect]
     Indication: RADICAL HYSTERECTOMY
     Route: 042
     Dates: start: 20080527, end: 20080527
  2. HEPARIN SODIUM [Suspect]
     Indication: OMENTECTOMY
     Route: 042
     Dates: start: 20080527, end: 20080527
  3. HEPARIN SODIUM [Suspect]
     Indication: LYMPHADENECTOMY
     Route: 042
     Dates: start: 20080527, end: 20080527
  4. HEPARIN SODIUM [Suspect]
     Indication: CYSTOSCOPY
     Route: 042
     Dates: start: 20080527, end: 20080527
  5. HEPARIN SODIUM [Suspect]
     Indication: URETERAL STENT INSERTION
     Route: 042
     Dates: start: 20080527, end: 20080527
  6. ZOLOFT [Concomitant]
     Indication: PRODUCT USED FOR UNKNOWN INDICATION
     Route: 065
  7. WELLBUTRIN SR [Concomitant]
     Indication: PRODUCT USED FOR UNKNOWN INDICATION
     Route: 065
  8. CEPHALEXIN [Concomitant]
     Indication: PRODUCT USED FOR UNKNOWN INDICATION
     Route: 065
  9. PROAIR HFA [Concomitant]
     Indication: PRODUCT USED FOR UNKNOWN INDICATION
     Route: 065
  10. GOLYTELY [Concomitant]
     Indication: PRODUCT USED FOR UNKNOWN INDICATION
     Route: 065
  11. COLACE [Concomitant]
     Indication: PRODUCT USED FOR UNKNOWN INDICATION
     Route: 065
  12. FERROUS SULFATE [Concomitant]
     Indication: PRODUCT USED FOR UNKNOWN INDICATION
     Route: 065
  13. MILK OF MAGNESIA TAB [Concomitant]
     Indication: PRODUCT USED FOR UNKNOWN INDICATION
     Route: 065
  14. DULCOLAX [Concomitant]
     Indication: PRODUCT USED FOR UNKNOWN INDICATION
     Route: 065
  15. MOTRIN [Concomitant]
     Indication: PAIN
     Route: 065
  16. TYLENOL W/ CODEINE NO. 3 [Concomitant]
     Indication: PAIN
     Route: 065
  17. VICODIN [Concomitant]
     Indication: PAIN
     Route: 065
  18. SURGICEL ABSORBABLE HEMOSTATIC CONE [Concomitant]
     Indication: PRODUCT USED FOR UNKNOWN INDICATION
     Route: 065
  19. AVITENE [Concomitant]
     Indication: PRODUCT USED FOR UNKNOWN INDICATION
     Route: 065
  20. BUP-4 [Concomitant]
     Indication: PRODUCT USED FOR UNKNOWN INDICATION
     Route: 058

REACTIONS (10)
  - ANXIETY [None]
  - CHEST PAIN [None]
  - DYSPNOEA [None]
  - ERYTHEMA [None]
  - HAEMORRHAGE [None]
  - HEADACHE [None]
  - HYPERHIDROSIS [None]
  - HYPOAESTHESIA [None]
  - PAIN IN EXTREMITY [None]
  - PARAESTHESIA [None]
